FAERS Safety Report 12990704 (Version 1)
Quarter: 2016Q4

REPORT INFORMATION
  Report Type: Spontaneous
  Country: US (occurrence: US)
  Receive Date: 20161201
  Receipt Date: 20161201
  Transmission Date: 20170207
  Serious: No
  Sender: FDA-Public Use
  Company Number: None

PATIENT

DRUGS (2)
  1. PUMP [Suspect]
     Active Substance: DEVICE
  2. PROPOFOL. [Suspect]
     Active Substance: PROPOFOL

REACTIONS (4)
  - Device malfunction [None]
  - Hypotension [None]
  - Incorrect drug administration duration [None]
  - Device breakage [None]
